FAERS Safety Report 10255905 (Version 2)
Quarter: 2014Q2

REPORT INFORMATION
  Report Type: Spontaneous
  Country: CA (occurrence: CA)
  Receive Date: 20140624
  Receipt Date: 20140625
  Transmission Date: 20141212
  Serious: Yes (Other)
  Sender: FDA-Public Use
  Company Number: CA-GLAXOSMITHKLINE-A1075366A

PATIENT
  Age: 85 Year
  Sex: Male

DRUGS (9)
  1. TAFINLAR [Suspect]
     Indication: METASTATIC MALIGNANT MELANOMA
     Dosage: 150MG TWICE PER DAY
     Route: 048
     Dates: start: 20140529
  2. PANTOPRAZOLE [Concomitant]
  3. SELENIUM [Concomitant]
  4. CLOPIDOGREL [Concomitant]
  5. METOPROLOL [Concomitant]
  6. LYCOPENE [Concomitant]
  7. LUTEIN [Concomitant]
  8. ROSUVASTATIN [Concomitant]
  9. PERINDOPRIL [Concomitant]

REACTIONS (4)
  - Pain in extremity [Recovering/Resolving]
  - Haematochezia [Not Recovered/Not Resolved]
  - Diarrhoea [Not Recovered/Not Resolved]
  - Myalgia [Recovering/Resolving]
